FAERS Safety Report 26137351 (Version 1)
Quarter: 2025Q4

REPORT INFORMATION
  Report Type: Spontaneous
  Country: JP (occurrence: JP)
  Receive Date: 20251209
  Receipt Date: 20251209
  Transmission Date: 20260118
  Serious: Yes (Hospitalization, Other)
  Sender: BRACCO
  Company Number: JP-BRACCO-2025JP08548

PATIENT
  Age: 72 Year
  Sex: Female
  Weight: 48 kg

DRUGS (15)
  1. IOMERON [Suspect]
     Active Substance: IOMEPROL
     Indication: Computerised tomogram
     Dosage: UNK, SINGLE
     Dates: start: 20251023, end: 20251023
  2. PREDNISOLONE ACETATE [Concomitant]
     Active Substance: PREDNISOLONE ACETATE
  3. MAGNESIUM OXIDE [Concomitant]
     Active Substance: MAGNESIUM OXIDE
  4. TEPRENONE [Concomitant]
     Active Substance: TEPRENONE
  5. URSODIOL [Concomitant]
     Active Substance: URSODIOL
  6. UNSPECIFIED INGREDIENT [Concomitant]
     Active Substance: UNSPECIFIED INGREDIENT
  7. TU-100 [Concomitant]
     Active Substance: ASIAN GINSENG\GINGER\ZANTHOXYLUM PIPERITUM FRUIT PULP
  8. ROSUVASTATIN [Concomitant]
     Active Substance: ROSUVASTATIN
  9. DAYVIGO [Concomitant]
     Active Substance: LEMBOREXANT
  10. BILASTINE [Concomitant]
     Active Substance: BILASTINE
  11. SOLIFENACIN SUCCINATE [Concomitant]
     Active Substance: SOLIFENACIN SUCCINATE
  12. REBAMIPIDE [Concomitant]
     Active Substance: REBAMIPIDE
  13. LOXOPROFEN SODIUM [Concomitant]
     Active Substance: LOXOPROFEN SODIUM
  14. VIVIANT [Concomitant]
     Active Substance: BAZEDOXIFENE
  15. ELDECALCITOL [Concomitant]
     Active Substance: ELDECALCITOL

REACTIONS (2)
  - Contraindicated product administered [Recovered/Resolved]
  - Anaphylactic shock [Recovered/Resolved]

NARRATIVE: CASE EVENT DATE: 20251023
